FAERS Safety Report 7607943-6 (Version None)
Quarter: 2011Q3

REPORT INFORMATION
  Report Type: 
  Country: None (occurrence: None)
  Receive Date: 20110714
  Receipt Date: 20110201
  Transmission Date: 20111222
  Serious: Yes (Other)
  Sender: FDA-Public Use
  Company Number: US-BAYER-200915590NA

PATIENT
  Age: 48 Year
  Sex: Female
  Weight: 54 kg

DRUGS (27)
  1. TOPROL-XL [Concomitant]
     Dosage: 100 MG, QD
     Route: 048
  2. NOREPINEPHRINE BITARTRATE [Concomitant]
     Dosage: UNK
     Route: 042
     Dates: start: 20030818
  3. AVAPRO [Concomitant]
     Dosage: 150 MG, QD
     Route: 048
  4. ZINACEF [Concomitant]
     Dosage: UNK
     Route: 042
     Dates: start: 20030818
  5. GLYNASE [Concomitant]
     Dosage: 1.5 DAILY
     Route: 048
  6. ASPIRIN [Concomitant]
     Dosage: 81 MG, UNK
     Route: 048
  7. GLUCOPHAGE [Concomitant]
     Dosage: 500 MG, TID
     Route: 048
  8. ISOFLURANE [Concomitant]
     Dosage: INHALANT
  9. MILRINONE [Concomitant]
     Dosage: 5 MG, UNK
     Route: 042
  10. SODIUM BICARBONATE [Concomitant]
     Dosage: 30 MG, UNK
     Route: 042
     Dates: start: 20030818
  11. LISINOPRIL [Concomitant]
     Dosage: 20 MG, QD
     Route: 048
  12. FENTANYL [Concomitant]
     Dosage: UNK
     Route: 042
     Dates: start: 20030818
  13. PROPOFOL [Concomitant]
     Dosage: UNK
     Route: 042
     Dates: start: 20030818
  14. MANNITOL [Concomitant]
     Dosage: 500 MG, UNK
     Route: 042
     Dates: start: 20030818
  15. CALCIUM CHLORIDE [Concomitant]
     Dosage: 1 G, UNK
     Route: 042
     Dates: start: 20030818
  16. HYDROCHLOROTHIAZIDE [Concomitant]
     Dosage: 25 MG, QD
     Route: 048
  17. TRASYLOL [Suspect]
     Indication: CORONARY ARTERY BYPASS
     Dates: start: 20030818
  18. FUROSEMIDE [Concomitant]
     Dosage: 80 MG, QD
     Route: 048
  19. LOPRESSOR [Concomitant]
     Dosage: UNK
     Route: 048
  20. PANCURON [Concomitant]
     Dosage: 10 MG, UNK
     Route: 042
     Dates: start: 20030818
  21. AVAPRO [Concomitant]
  22. PHENYLEPHRINE HCL [Concomitant]
     Dosage: UNK
     Route: 042
     Dates: start: 20030818
  23. INSULIN [Concomitant]
     Dosage: UNK
     Route: 042
     Dates: start: 20030818
  24. LANTUS [Concomitant]
     Route: 058
  25. GLYBURIDE [Concomitant]
     Dosage: 10 MG, UNK
     Route: 048
  26. GLYBURIDE [Concomitant]
     Dosage: 5 MG, UNK
     Route: 048
  27. HEPARIN [Concomitant]
     Dosage: 1000 U, UNK
     Route: 042
     Dates: start: 20030818

REACTIONS (9)
  - DEPRESSION [None]
  - INJURY [None]
  - ANXIETY [None]
  - UNEVALUABLE EVENT [None]
  - FEAR [None]
  - ANHEDONIA [None]
  - RENAL FAILURE [None]
  - PAIN [None]
  - RENAL FAILURE CHRONIC [None]
